FAERS Safety Report 4686926-2 (Version None)
Quarter: 2005Q2

REPORT INFORMATION
  Report Type: 
  Country: None (occurrence: None)
  Receive Date: 20050606
  Receipt Date: 20050524
  Transmission Date: 20051028
  Serious: Yes (Hospitalization)
  Sender: FDA-Public Use
  Company Number: FR_040404023

PATIENT
  Age: 73 Year
  Sex: Male

DRUGS (3)
  1. GEMZAR [Suspect]
     Indication: BLADDER CANCER
     Dosage: 1000 MG/M2/ 3 OTHER
     Route: 050
     Dates: start: 20040217, end: 20040323
  2. CISPLATIN [Concomitant]
  3. GRANOCYTE (LENOGRASTIM) [Concomitant]

REACTIONS (6)
  - CHILLS [None]
  - DERMATOMYOSITIS [None]
  - MUCOSAL INFLAMMATION [None]
  - PANCYTOPENIA [None]
  - STEVENS-JOHNSON SYNDROME [None]
  - TOXIC SKIN ERUPTION [None]
